FAERS Safety Report 7599897-6 (Version None)
Quarter: 2011Q3

REPORT INFORMATION
  Report Type: 
  Country: None (occurrence: None)
  Receive Date: 20110711
  Receipt Date: 20110701
  Transmission Date: 20111222
  Serious: Yes (Hospitalization)
  Sender: FDA-Public Use
  Company Number: US-US-EMD SERONO, INC.-7068842

PATIENT
  Sex: Female

DRUGS (4)
  1. INSULIN [Concomitant]
     Dates: start: 20090801
  2. REBIF [Suspect]
     Indication: MULTIPLE SCLEROSIS
     Route: 058
     Dates: start: 20060719, end: 20090801
  3. H1N1 VACCINE [Suspect]
     Indication: H1N1 INFLUENZA
     Dates: start: 20091101, end: 20091101
  4. METFORMIN HCL [Concomitant]
     Indication: TYPE 2 DIABETES MELLITUS
     Dates: start: 20060501, end: 20090801

REACTIONS (2)
  - MATERNAL EXPOSURE DURING PREGNANCY [None]
  - ABORTION SPONTANEOUS [None]
